FAERS Safety Report 24235924 (Version 1)
Quarter: 2024Q3

REPORT INFORMATION
  Report Type: Other
  Country: US (occurrence: US)
  Receive Date: 20240822
  Receipt Date: 20240822
  Transmission Date: 20241017
  Serious: Yes (Death, Hospitalization)
  Sender: BIONPHARMA
  Company Number: US-Bion-013690

PATIENT
  Age: 28 Year
  Sex: Male

DRUGS (20)
  1. DEXAMETHASONE [Suspect]
     Active Substance: DEXAMETHASONE
     Indication: B-cell type acute leukaemia
  2. CYCLOPHOSPHAMIDE [Concomitant]
     Active Substance: CYCLOPHOSPHAMIDE
     Indication: B-cell type acute leukaemia
  3. VINCRISTINE SULFATE [Concomitant]
     Active Substance: VINCRISTINE SULFATE
     Indication: B-cell type acute leukaemia
  4. DOXORUBICIN [Concomitant]
     Active Substance: DOXORUBICIN
     Indication: B-cell type acute leukaemia
  5. DASATINIB [Concomitant]
     Active Substance: DASATINIB
     Indication: B-cell type acute leukaemia
  6. NILOTINIB [Concomitant]
     Active Substance: NILOTINIB
     Indication: B-cell type acute leukaemia
  7. CARMUSTINE [Concomitant]
     Active Substance: CARMUSTINE
     Indication: B-cell type acute leukaemia
  8. MERCAPTOPURINE [Concomitant]
     Active Substance: MERCAPTOPURINE
     Indication: B-cell type acute leukaemia
  9. METHOTREXATE [Concomitant]
     Active Substance: METHOTREXATE
     Indication: B-cell type acute leukaemia
  10. DECITABINE [Concomitant]
     Active Substance: DECITABINE
     Indication: B-cell type acute leukaemia
  11. VENETOCLAX [Concomitant]
     Active Substance: VENETOCLAX
     Indication: B-cell type acute leukaemia
  12. INOTUZUMAB OZOGAMICIN [Concomitant]
     Active Substance: INOTUZUMAB OZOGAMICIN
     Indication: B-cell type acute leukaemia
  13. MITOMYCIN C [Concomitant]
     Active Substance: MITOMYCIN
     Indication: B-cell type acute leukaemia
  14. VINBLASTINE [Concomitant]
     Active Substance: VINBLASTINE
     Indication: B-cell type acute leukaemia
  15. CISPLATIN [Concomitant]
     Active Substance: CISPLATIN
     Indication: B-cell type acute leukaemia
  16. IFOSFAMIDE [Concomitant]
     Active Substance: IFOSFAMIDE
     Indication: B-cell type acute leukaemia
  17. ASPARAGINASE [Concomitant]
     Active Substance: ASPARAGINASE
     Indication: B-cell type acute leukaemia
  18. ETOPOSIDE [Concomitant]
     Active Substance: ETOPOSIDE
     Indication: B-cell type acute leukaemia
  19. CLADRIBINE [Concomitant]
     Active Substance: CLADRIBINE
     Indication: B-cell type acute leukaemia
  20. CYTARABINE [Concomitant]
     Active Substance: CYTARABINE
     Indication: B-cell type acute leukaemia

REACTIONS (1)
  - Drug ineffective [Fatal]
